FAERS Safety Report 15370879 (Version 1)
Quarter: 2018Q3

REPORT INFORMATION
  Report Type: Spontaneous
  Country: US (occurrence: US)
  Receive Date: 20180911
  Receipt Date: 20180911
  Transmission Date: 20181010
  Serious: Yes (Other)
  Sender: FDA-Public Use
  Company Number: US-OTSUKA-2018_019802

PATIENT

DRUGS (3)
  1. ABILIFY [Suspect]
     Active Substance: ARIPIPRAZOLE
     Indication: MAJOR DEPRESSION
     Dosage: UNK
     Route: 065
     Dates: start: 20110101, end: 20130101
  2. ABILIFY [Suspect]
     Active Substance: ARIPIPRAZOLE
     Indication: ANXIETY
     Dosage: UNK
     Route: 065
     Dates: start: 20140402, end: 20160402
  3. ABILIFY [Suspect]
     Active Substance: ARIPIPRAZOLE
     Indication: SOCIAL ANXIETY DISORDER

REACTIONS (14)
  - Suicide attempt [Not Recovered/Not Resolved]
  - Sexually transmitted disease [Unknown]
  - Compulsive hoarding [Not Recovered/Not Resolved]
  - Eating disorder [Not Recovered/Not Resolved]
  - Trichotillomania [Not Recovered/Not Resolved]
  - Economic problem [Unknown]
  - Compulsive shopping [Not Recovered/Not Resolved]
  - Gambling disorder [Not Recovered/Not Resolved]
  - Obsessive-compulsive disorder [Not Recovered/Not Resolved]
  - Product use in unapproved indication [Unknown]
  - Suicidal ideation [Not Recovered/Not Resolved]
  - Dermatillomania [Not Recovered/Not Resolved]
  - Compulsive sexual behaviour [Not Recovered/Not Resolved]
  - Metabolic surgery [Unknown]

NARRATIVE: CASE EVENT DATE: 2011
